FAERS Safety Report 5160110-0 (Version None)
Quarter: 2006Q4

REPORT INFORMATION
  Report Type: 
  Country: None (occurrence: None)
  Receive Date: 20061129
  Receipt Date: 20060921
  Transmission Date: 20070319
  Serious: Yes (Other)
  Sender: FDA-Public Use
  Company Number: US-GLAXOSMITHKLINE-A0620939A

PATIENT
  Age: 68 Year
  Sex: Female

DRUGS (5)
  1. CITRUCEL CAPLETS [Suspect]
     Indication: CONSTIPATION PROPHYLAXIS
     Dosage: 2CAPL PER DAY
     Route: 048
  2. KLONOPIN [Concomitant]
  3. COUMADIN [Concomitant]
  4. FOSAMAX [Concomitant]
  5. MULTI-VITAMIN [Concomitant]

REACTIONS (6)
  - CONSTIPATION [None]
  - DRUG INEFFECTIVE [None]
  - GASTROINTESTINAL INFECTION [None]
  - HAEMATOCHEZIA [None]
  - RECTAL DISCHARGE [None]
  - RECTAL HAEMORRHAGE [None]
